FAERS Safety Report 5880500-8 (Version None)
Quarter: 2008Q3

REPORT INFORMATION
  Report Type: 
  Country: None (occurrence: None)
  Receive Date: 20080912
  Receipt Date: 20080905
  Transmission Date: 20090109
  Serious: Yes (Other)
  Sender: FDA-Public Use
  Company Number: US-GENENTECH-267576

PATIENT
  Age: 73 Year
  Sex: Female

DRUGS (3)
  1. BEVACIZUMAB [Suspect]
     Indication: PANCREATIC CARCINOMA
     Dosage: 452 MG, UNK
     Route: 042
     Dates: start: 20050404
  2. CETUXIMAB [Suspect]
     Indication: PANCREATIC CARCINOMA
     Dosage: 720 MG, UNK
     Route: 042
     Dates: start: 20050404
  3. GEMCITABINE [Suspect]
     Indication: PANCREATIC CARCINOMA
     Dosage: 2880 MG, UNK
     Route: 042
     Dates: start: 20050404

REACTIONS (1)
  - PLATELET COUNT DECREASED [None]
